FAERS Safety Report 23472758 (Version 1)
Quarter: 2024Q1

REPORT INFORMATION
  Report Type: Report from Study
  Country: NL (occurrence: NL)
  Receive Date: 20240202
  Receipt Date: 20240202
  Transmission Date: 20240409
  Serious: Yes (Death)
  Sender: FDA-Public Use
  Company Number: NL-ABBVIE-5619689

PATIENT
  Age: 63 Year
  Sex: Male

DRUGS (8)
  1. CARBIDOPA\LEVODOPA [Suspect]
     Active Substance: CARBIDOPA\LEVODOPA
     Indication: Parkinson^s disease
     Dosage: MD: 14.7ML, CD: 4.0ML/H, CD: 2.0ML, REMAINS AT 24 HOURS
     Route: 050
     Dates: start: 20230905, end: 20231116
  2. CARBIDOPA\LEVODOPA [Suspect]
     Active Substance: CARBIDOPA\LEVODOPA
     Dosage: MD: 14.7ML, CD: 3.8ML/H, CD: 2.0ML, REMAINS AT 24 HOURS
     Route: 050
     Dates: start: 20240109
  3. CARBIDOPA\LEVODOPA [Suspect]
     Active Substance: CARBIDOPA\LEVODOPA
     Dosage: D: 14.7ML, CD: 4.0ML/H, CD: 2.0ML, CND: 2.2ML/H, REMAINS AT 24 HOURS
     Route: 050
     Dates: start: 20231116, end: 20240109
  4. CARBIDOPA\LEVODOPA [Suspect]
     Active Substance: CARBIDOPA\LEVODOPA
     Route: 050
     Dates: start: 20180527
  5. BENSERAZIDE HYDROCHLORIDE\LEVODOPA [Concomitant]
     Active Substance: BENSERAZIDE HYDROCHLORIDE\LEVODOPA
     Indication: Parkinson^s disease
     Dosage: 100/25MG
  6. BENSERAZIDE HYDROCHLORIDE\LEVODOPA [Concomitant]
     Active Substance: BENSERAZIDE HYDROCHLORIDE\LEVODOPA
     Indication: Parkinson^s disease
     Dosage: 100/25MG
  7. CLONAZEPAM-R [Concomitant]
     Indication: Parkinson^s disease
  8. NEUPRO [Concomitant]
     Active Substance: ROTIGOTINE
     Indication: Parkinson^s disease
     Dosage: 8MG/H

REACTIONS (2)
  - Infection [Fatal]
  - Pyrexia [Fatal]
